FAERS Safety Report 7744409-7 (Version None)
Quarter: 2011Q3

REPORT INFORMATION
  Report Type: 
  Country: None (occurrence: None)
  Receive Date: 20110908
  Receipt Date: 20110830
  Transmission Date: 20111222
  Serious: Yes (Hospitalization)
  Sender: FDA-Public Use
  Company Number: AXC-2011-000304

PATIENT
  Age: 23 Year
  Sex: Female
  Weight: 66 kg

DRUGS (5)
  1. CONTRACEPTIVES NOS [Concomitant]
  2. BENTYL [Suspect]
     Indication: ABDOMINAL PAIN
     Dosage: INTRAVENOUS
     Route: 042
     Dates: start: 20110712, end: 20110712
  3. IBUPROFEN [Concomitant]
  4. BENTYL [Suspect]
     Indication: PRODUCT USED FOR UNKNOWN INDICATION
     Dosage: 10 MG, TID PRN
     Dates: end: 20110713
  5. PERCOCET [Concomitant]

REACTIONS (15)
  - SKIN TIGHTNESS [None]
  - LOSS OF CONSCIOUSNESS [None]
  - INCORRECT ROUTE OF DRUG ADMINISTRATION [None]
  - CHEST PAIN [None]
  - THROMBOPHLEBITIS [None]
  - VOMITING [None]
  - OEDEMA PERIPHERAL [None]
  - NAUSEA [None]
  - INJECTION SITE PAIN [None]
  - HEART RATE DECREASED [None]
  - HYPOAESTHESIA ORAL [None]
  - FACIAL PAIN [None]
  - PAIN IN EXTREMITY [None]
  - HYPOAESTHESIA [None]
  - VISION BLURRED [None]
